FAERS Safety Report 12478419 (Version 15)
Quarter: 2020Q3

REPORT INFORMATION
  Report Type: Report from Study
  Country: US (occurrence: US)
  Receive Date: 20160618
  Receipt Date: 20171116
  Transmission Date: 20201105
  Serious: Yes (Life-Threatening, Hospitalization)
  Sender: FDA-Public Use
  Company Number: US-JNJFOC-20160606147

PATIENT
  Age: 77 Year
  Sex: Female
  Weight: 77.11 kg

DRUGS (41)
  1. VELCADE [Concomitant]
     Active Substance: BORTEZOMIB
     Indication: PLASMA CELL MYELOMA
     Route: 058
     Dates: start: 20150820, end: 20150820
  2. VELCADE [Concomitant]
     Active Substance: BORTEZOMIB
     Indication: PLASMA CELL MYELOMA
     Route: 058
     Dates: start: 20150709, end: 20150806
  3. MELPHALAN. [Concomitant]
     Active Substance: MELPHALAN
     Indication: PLASMA CELL MYELOMA
     Route: 048
     Dates: start: 20150416
  4. METFORMIN [Concomitant]
     Active Substance: METFORMIN HYDROCHLORIDE
     Indication: DIABETES MELLITUS
     Route: 048
     Dates: start: 2010, end: 20160601
  5. LISINOPRIL. [Concomitant]
     Active Substance: LISINOPRIL
     Indication: HYPERTENSION
     Route: 048
     Dates: start: 20160601, end: 20160629
  6. OMEPRAZOLE. [Concomitant]
     Active Substance: OMEPRAZOLE
     Indication: ABDOMINAL PAIN UPPER
     Route: 048
     Dates: start: 20151112
  7. HYDROCODONE [Concomitant]
     Active Substance: HYDROCODONE
     Indication: CONSTIPATION
     Route: 048
     Dates: start: 20160130
  8. VITAMINA B12 [Concomitant]
     Indication: NUTRITIONAL SUPPLEMENTATION
     Route: 060
     Dates: start: 20160119
  9. POTASSIUM CHLORIDE. [Concomitant]
     Active Substance: POTASSIUM CHLORIDE
     Indication: VITAMIN SUPPLEMENTATION
     Route: 048
     Dates: start: 20160601, end: 20160629
  10. HEPARIN [Concomitant]
     Active Substance: HEPARIN SODIUM
     Indication: ISCHAEMIC STROKE
     Route: 058
     Dates: start: 20160601
  11. ZOMETA [Concomitant]
     Active Substance: ZOLEDRONIC ACID
     Indication: OSTEOPOROSIS PROPHYLAXIS
     Route: 042
     Dates: start: 20150730
  12. COLACE [Concomitant]
     Active Substance: DOCUSATE SODIUM
     Route: 048
  13. PROCRIT [Concomitant]
     Active Substance: ERYTHROPOIETIN
  14. ALBUTEROL W/IPRATROPIUM [Concomitant]
     Active Substance: ALBUTEROL\IPRATROPIUM
     Route: 055
     Dates: start: 20160605
  15. PREDNISONE. [Concomitant]
     Active Substance: PREDNISONE
     Indication: PLASMA CELL MYELOMA
     Dosage: D1 AND D22 EVERY 28 DAYS
     Route: 042
     Dates: start: 20150528
  16. LISINOPRIL. [Concomitant]
     Active Substance: LISINOPRIL
     Indication: HYPERTENSION
     Route: 048
     Dates: start: 201407, end: 20160629
  17. VITAMIN D3 CALCIUM [Concomitant]
     Active Substance: CALCIUM\CHOLECALCIFEROL
     Dosage: CALCIUM 600 IU+D 600MG?200 IU
     Route: 048
  18. ALPHAGAN P [Concomitant]
     Active Substance: BRIMONIDINE TARTRATE
     Dosage: 0.1% EACH AFFECTED EYE
  19. MICONAZOLE. [Concomitant]
     Active Substance: MICONAZOLE
     Dosage: 2%
     Route: 061
     Dates: start: 20160605
  20. VELCADE [Concomitant]
     Active Substance: BORTEZOMIB
     Indication: PLASMA CELL MYELOMA
     Route: 058
     Dates: start: 20150910
  21. ASPIRIN. [Concomitant]
     Active Substance: ASPIRIN
     Indication: CARDIOVASCULAR EVENT PROPHYLAXIS
     Route: 048
     Dates: start: 2010
  22. METOPROLOL. [Concomitant]
     Active Substance: METOPROLOL
     Indication: HYPERTENSION
     Route: 048
     Dates: start: 201407
  23. BISACODYL. [Concomitant]
     Active Substance: BISACODYL
     Indication: CONSTIPATION
     Route: 048
     Dates: start: 20160130, end: 20160601
  24. GABAPENTIN. [Concomitant]
     Active Substance: GABAPENTIN
     Indication: BACK PAIN
     Route: 048
     Dates: start: 20160315
  25. CENTRUM SILVER [Concomitant]
     Active Substance: MINERALS\VITAMINS
  26. DARATUMUMAB [Suspect]
     Active Substance: DARATUMUMAB
     Route: 042
  27. GABAPENTIN. [Concomitant]
     Active Substance: GABAPENTIN
     Indication: NEURALGIA
     Route: 048
     Dates: start: 20160315
  28. XALATAN [Concomitant]
     Active Substance: LATANOPROST
  29. COLACE [Concomitant]
     Active Substance: DOCUSATE SODIUM
     Route: 048
     Dates: start: 20140801
  30. CALCIUM [Concomitant]
     Active Substance: CALCIUM
     Route: 048
  31. ALPHAGAN P [Concomitant]
     Active Substance: BRIMONIDINE TARTRATE
     Indication: PROPHYLAXIS
     Route: 047
     Dates: start: 20160601
  32. VELCADE [Concomitant]
     Active Substance: BORTEZOMIB
     Indication: PLASMA CELL MYELOMA
     Route: 058
     Dates: start: 20150514, end: 20150625
  33. OXYBUTYNIN. [Concomitant]
     Active Substance: OXYBUTYNIN CHLORIDE
     Indication: URINARY INCONTINENCE
     Route: 048
     Dates: start: 20160601, end: 20160629
  34. HYDRALAZINE [Concomitant]
     Active Substance: HYDRALAZINE HYDROCHLORIDE
     Indication: HYPERTENSION
     Route: 048
     Dates: start: 20160605
  35. HYDRALAZINE [Concomitant]
     Active Substance: HYDRALAZINE HYDROCHLORIDE
     Indication: HYPERTENSION
     Route: 048
     Dates: start: 20160604, end: 20160629
  36. DARATUMUMAB [Suspect]
     Active Substance: DARATUMUMAB
     Indication: PLASMA CELL MYELOMA
     Dosage: MED. KIT NO. 4370845??FREQUENCY REPORTED AS EVERY 28 DAYS
     Route: 042
     Dates: start: 20160415
  37. GLIPIZIDE. [Concomitant]
     Active Substance: GLIPIZIDE
     Indication: DIABETES MELLITUS
     Route: 048
     Dates: start: 20160604
  38. GLIPIZIDE. [Concomitant]
     Active Substance: GLIPIZIDE
     Indication: DIABETES MELLITUS
     Route: 048
     Dates: start: 1995, end: 20160601
  39. FUROSEMIDE. [Concomitant]
     Active Substance: FUROSEMIDE
     Route: 048
     Dates: start: 20160605
  40. LATANOPROST. [Concomitant]
     Active Substance: LATANOPROST
     Dosage: 0.005% EACH EYE
     Route: 047
     Dates: start: 20160601
  41. VELCADE [Concomitant]
     Active Substance: BORTEZOMIB
     Indication: PLASMA CELL MYELOMA
     Route: 058
     Dates: start: 20150416, end: 20150427

REACTIONS (3)
  - Ischaemic stroke [Recovered/Resolved]
  - Cardiac failure congestive [Recovered/Resolved]
  - Pneumonia viral [Recovered/Resolved]

NARRATIVE: CASE EVENT DATE: 20160601
